FAERS Safety Report 7284836-8 (Version None)
Quarter: 2011Q1

REPORT INFORMATION
  Report Type: 
  Country: None (occurrence: None)
  Receive Date: 20110210
  Receipt Date: 20110208
  Transmission Date: 20110831
  Serious: No
  Sender: FDA-Public Use
  Company Number: US-PFIZER INC-2011028860

PATIENT

DRUGS (1)
  1. CHANTIX [Suspect]
     Dosage: UNK

REACTIONS (6)
  - VOMITING [None]
  - DECREASED INTEREST [None]
  - COUGH [None]
  - SOMNOLENCE [None]
  - DRY MOUTH [None]
  - NAUSEA [None]
